FAERS Safety Report 17795385 (Version 2)
Quarter: 2020Q2

REPORT INFORMATION
  Report Type: Spontaneous
  Country: PT (occurrence: PT)
  Receive Date: 20200515
  Receipt Date: 20200629
  Transmission Date: 20200714
  Serious: Yes (Death, Life-Threatening, Hospitalization, Other)
  Sender: FDA-Public Use
  Company Number: NVSC2020PT054049

PATIENT
  Age: 62 Year
  Sex: Male

DRUGS (5)
  1. PREDNISOLONE. [Suspect]
     Active Substance: PREDNISOLONE
     Indication: STEVENS-JOHNSON SYNDROME
     Dosage: 80 MG, QD
     Route: 065
  2. ALLOPURINOL. [Suspect]
     Active Substance: ALLOPURINOL
     Indication: PRODUCT USED FOR UNKNOWN INDICATION
     Dosage: UNK
     Route: 065
  3. ALLOPURINOL. [Suspect]
     Active Substance: ALLOPURINOL
     Route: 065
  4. EVEROLIMUS. [Suspect]
     Active Substance: EVEROLIMUS
     Indication: IMMUNOSUPPRESSANT DRUG THERAPY
     Dosage: UNK
     Route: 050
  5. FLUCLOXACILLIN [Suspect]
     Active Substance: FLUCLOXACILLIN
     Indication: STAPHYLOCOCCAL INFECTION
     Dosage: 12 G, QD
     Route: 065

REACTIONS (14)
  - Pericardial effusion [Fatal]
  - Thrombosis [Fatal]
  - Infective aneurysm [Fatal]
  - Sepsis [Fatal]
  - Vascular pseudoaneurysm [Fatal]
  - Staphylococcal bacteraemia [Fatal]
  - Stevens-Johnson syndrome [Fatal]
  - Nervous system disorder [Fatal]
  - Ventricular hypokinesia [Fatal]
  - Ventricle rupture [Fatal]
  - Respiratory disorder [Fatal]
  - Coronary artery aneurysm [Fatal]
  - Drug ineffective [Unknown]
  - Mitral valve incompetence [Fatal]
